FAERS Safety Report 8202300-6 (Version None)
Quarter: 2012Q1

REPORT INFORMATION
  Report Type: 
  Country: None (occurrence: None)
  Receive Date: 20120312
  Receipt Date: 20120302
  Transmission Date: 20120608
  Serious: Yes (Other)
  Sender: FDA-Public Use
  Company Number: CA-JNJFOC-20120302067

PATIENT
  Sex: Female
  Weight: 84 kg

DRUGS (3)
  1. STELARA [Suspect]
     Indication: PSORIASIS
     Route: 058
     Dates: start: 20100201
  2. SYNTHROID [Concomitant]
  3. INDERAL [Concomitant]

REACTIONS (1)
  - TINNITUS [None]
